FAERS Safety Report 9275139 (Version 1)
Quarter: 2013Q2

REPORT INFORMATION
  Report Type: Spontaneous
  Country: US (occurrence: US)
  Receive Date: 20130507
  Receipt Date: 20130507
  Transmission Date: 20140414
  Serious: No
  Sender: FDA-Public Use
  Company Number: US-BAYER-2013-054622

PATIENT
  Sex: Female
  Weight: 58.05 kg

DRUGS (12)
  1. BETASERON [Suspect]
     Dosage: 0.25 ML, QOD
     Route: 058
  2. BETASERON [Suspect]
     Dosage: UNK
  3. PREMARIN [Concomitant]
     Dosage: 0.4 MG, UNK
  4. ESTRATEST [Concomitant]
  5. OMEPRAZOLE [Concomitant]
     Dosage: 10 MG, UNK
  6. WELLBUTRIN [Concomitant]
     Dosage: 100 MG, UNK
  7. CALCIUM +VIT D [Concomitant]
  8. CRANBERRY [Concomitant]
  9. VITAMIN E [Concomitant]
     Dosage: 100 U, UNK
  10. CLARITIN [Concomitant]
     Dosage: 10 MG, UNK
  11. ZYRTEC [CETIRIZINE HYDROCHLORIDE] [Concomitant]
     Dosage: 10 MG, UNK
  12. ASTELIN [Concomitant]
     Dosage: 137 ?G, UNK

REACTIONS (4)
  - Constipation [Unknown]
  - Abdominal pain [Unknown]
  - Abdominal distension [Unknown]
  - Weight increased [Unknown]
